FAERS Safety Report 18755287 (Version 1)
Quarter: 2021Q1

REPORT INFORMATION
  Report Type: Spontaneous
  Country: US (occurrence: US)
  Receive Date: 20210115
  Receipt Date: 20210115
  Transmission Date: 20210419
  Serious: No
  Sender: FDA-Public Use
  Company Number: None

PATIENT
  Age: 58 Year

DRUGS (1)
  1. PROGRAF [Suspect]
     Active Substance: TACROLIMUS
     Route: 058
     Dates: start: 202101

REACTIONS (1)
  - Renal failure [None]

NARRATIVE: CASE EVENT DATE: 20210115
